FAERS Safety Report 23641950 (Version 1)
Quarter: 2024Q1

REPORT INFORMATION
  Report Type: Spontaneous
  Country: PT (occurrence: None)
  Receive Date: 20240318
  Receipt Date: 20240318
  Transmission Date: 20240410
  Serious: Yes (Other)
  Sender: FDA-Public Use
  Company Number: 2024A062760

PATIENT
  Age: 89 Year
  Sex: Male
  Weight: 90 kg

DRUGS (2)
  1. QUETIAPINE [Suspect]
     Active Substance: QUETIAPINE
     Indication: Agitation
     Dosage: 1 CP AT NIGHT AND IN SOS
     Route: 048
     Dates: start: 20240304, end: 20240308
  2. QUETIAPINE [Suspect]
     Active Substance: QUETIAPINE
     Indication: Agitation
     Dosage: 1 CP AT NIGHT AND IN SOS
     Route: 048
     Dates: start: 20240304, end: 20240308

REACTIONS (1)
  - Tongue oedema [Recovered/Resolved]

NARRATIVE: CASE EVENT DATE: 20240304
